FAERS Safety Report 15704235 (Version 1)
Quarter: 2018Q4

REPORT INFORMATION
  Report Type: Spontaneous
  Country: US (occurrence: US)
  Receive Date: 20181210
  Receipt Date: 20181210
  Transmission Date: 20190205
  Serious: Yes (Other)
  Sender: FDA-Public Use
  Company Number: None

PATIENT
  Age: 56 Week
  Sex: Male
  Weight: 88.2 kg

DRUGS (1)
  1. KENALOG [Suspect]
     Active Substance: TRIAMCINOLONE ACETONIDE
     Indication: ALOPECIA
     Dosage: ?          OTHER ROUTE:SHOTS IN MY SKULL?

REACTIONS (2)
  - Skull malformation [None]
  - Skin disorder [None]

NARRATIVE: CASE EVENT DATE: 20181106
